FAERS Safety Report 7968064-6 (Version None)
Quarter: 2011Q4

REPORT INFORMATION
  Report Type: 
  Country: None (occurrence: None)
  Receive Date: 20111207
  Receipt Date: 20111119
  Transmission Date: 20120403
  Serious: Yes (Hospitalization)
  Sender: FDA-Public Use
  Company Number: 2011AP002775

PATIENT
  Age: 51 Year
  Sex: Male

DRUGS (4)
  1. WARFARIN SODIUM [Concomitant]
  2. PAROXETINE HCL [Suspect]
     Indication: BIPOLAR DISORDER
     Dosage: 40 MG
  3. RISPERIDONE [Suspect]
     Indication: AGITATION
     Dosage: 3 MG
  4. RISPERIDONE [Suspect]
     Indication: DEPRESSION
     Dosage: 3 MG

REACTIONS (8)
  - DEPRESSION [None]
  - PSYCHOMOTOR HYPERACTIVITY [None]
  - DECREASED APPETITE [None]
  - FEELING OF DESPAIR [None]
  - INSOMNIA [None]
  - TARDIVE DYSKINESIA [None]
  - SUICIDAL IDEATION [None]
  - FLAT AFFECT [None]
